FAERS Safety Report 5077698-0 (Version None)
Quarter: 2006Q3

REPORT INFORMATION
  Report Type: 
  Country: None (occurrence: None)
  Receive Date: 20060807
  Receipt Date: 20060727
  Transmission Date: 20061208
  Serious: Yes (Death, Life-Threatening, Hospitalization)
  Sender: FDA-Public Use
  Company Number: 06H-167-0309510-00

PATIENT
  Sex: Male
  Weight: 112 kg

DRUGS (10)
  1. TAZICEF                   (CEFTAZIDIME) [Suspect]
     Indication: NEUTROPENIC SEPSIS
     Dosage: 1 GM, TID, INTRAVENTRIC
     Route: 050
  2. CIPROFLOXACIN [Suspect]
     Indication: NEUTROPENIC SEPSIS
     Dosage: 500 MG, BID, INTRAVENOUS
     Route: 042
     Dates: start: 20060317
  3. MEROPENEM          (MEROPENEM) [Suspect]
     Indication: NEUTROPENIC SEPSIS
     Dosage: 1 GM, TID, INTRAVENOUS
     Route: 042
     Dates: start: 20060305
  4. RITUXIMAB            (RITUXIMAB) [Suspect]
     Indication: NON-HODGKIN'S LYMPHOMA STAGE IV
     Dosage: SEE IMAGE
     Dates: start: 20060209, end: 20060209
  5. RITUXIMAB            (RITUXIMAB) [Suspect]
     Indication: NON-HODGKIN'S LYMPHOMA STAGE IV
     Dosage: SEE IMAGE
     Dates: start: 20050601
  6. YTTRIUM (YTTRIUM (90 Y)) [Suspect]
     Indication: NON-HODGKIN'S LYMPHOMA STAGE IV
     Dosage: INTRAVENOUS
     Route: 042
     Dates: start: 20060209, end: 20060209
  7. ZEVALIN [Suspect]
     Indication: NON-HODGKIN'S LYMPHOMA STAGE IV
     Dosage: INTRAVENOUS
     Route: 042
     Dates: start: 20060209, end: 20060209
  8. DEXAMETHASONE [Concomitant]
  9. FLUDARABINE [Concomitant]
  10. MITOXANTRONE [Concomitant]

REACTIONS (2)
  - NEUTROPENIC SEPSIS [None]
  - STEVENS-JOHNSON SYNDROME [None]
